FAERS Safety Report 11104897 (Version 4)
Quarter: 2015Q2

REPORT INFORMATION
  Report Type: Report from Study
  Country: TW (occurrence: TW)
  Receive Date: 20150511
  Receipt Date: 20150602
  Transmission Date: 20150821
  Serious: Yes (Hospitalization)
  Sender: FDA-Public Use
  Company Number: TW-ABBVIE-15P-153-1387370-00

PATIENT
  Age: 32 Year
  Sex: Female
  Weight: 51 kg

DRUGS (2)
  1. ETORICOXIB [Concomitant]
     Active Substance: ETORICOXIB
     Indication: ANKYLOSING SPONDYLITIS
     Dosage: HS
     Route: 048
     Dates: start: 20130114, end: 20141227
  2. HUMIRA [Suspect]
     Active Substance: ADALIMUMAB
     Indication: ANKYLOSING SPONDYLITIS
     Route: 058
     Dates: start: 20140728, end: 20141225

REACTIONS (2)
  - Haemorrhage [Recovered/Resolved]
  - Exposure during pregnancy [Unknown]

NARRATIVE: CASE EVENT DATE: 20150301
